FAERS Safety Report 11786257 (Version 2)
Quarter: 2016Q1

REPORT INFORMATION
  Report Type: Report from Study
  Country: US (occurrence: US)
  Receive Date: 20151130
  Receipt Date: 20160115
  Transmission Date: 20160525
  Serious: Yes (Hospitalization)
  Sender: FDA-Public Use
  Company Number: US-ACTELION-A-NJ2015-126371

PATIENT
  Age: 54 Year
  Sex: Male

DRUGS (1)
  1. MACITENTAN [Suspect]
     Active Substance: MACITENTAN
     Indication: PULMONARY ARTERIAL HYPERTENSION
     Dosage: 10 MG, UNK
     Route: 048
     Dates: start: 20151023, end: 2015

REACTIONS (7)
  - Oedema [Unknown]
  - Ascites [Unknown]
  - Fluid retention [Unknown]
  - Condition aggravated [Unknown]
  - Swelling [Unknown]
  - Hepatic encephalopathy [Unknown]
  - Abdominal cavity drainage [Unknown]
